FAERS Safety Report 5523626-0 (Version None)
Quarter: 2007Q4

REPORT INFORMATION
  Report Type: 
  Country: None (occurrence: None)
  Receive Date: 20071121
  Receipt Date: 20071114
  Transmission Date: 20080405
  Serious: Yes (Other)
  Sender: FDA-Public Use
  Company Number: US-WYE-H01291107

PATIENT
  Sex: Female

DRUGS (3)
  1. EFFEXOR XR [Suspect]
     Indication: DEPRESSION
     Dosage: UNKNOWN
     Route: 048
  2. LAMICTAL [Concomitant]
     Indication: CONVULSION
     Dosage: UNKNOWN
     Route: 048
  3. WELLBUTRIN [Concomitant]
     Indication: DEPRESSION
     Dosage: UNKNOWN
     Route: 048

REACTIONS (3)
  - APGAR SCORE LOW [None]
  - DRUG EXPOSURE DURING PREGNANCY [None]
  - INFANTILE APNOEIC ATTACK [None]
